FAERS Safety Report 22193021 (Version 1)
Quarter: 2023Q2

REPORT INFORMATION
  Report Type: Spontaneous
  Country: US (occurrence: US)
  Receive Date: 20230410
  Receipt Date: 20230410
  Transmission Date: 20230722
  Serious: No
  Sender: FDA-Public Use
  Company Number: US-THEA-2022002491

PATIENT
  Sex: Female

DRUGS (1)
  1. ZIOPTAN [Suspect]
     Active Substance: TAFLUPROST
     Indication: Product used for unknown indication
     Dosage: BOTH EYES
     Route: 047

REACTIONS (6)
  - Eye irritation [Recovered/Resolved]
  - Nasal discomfort [Recovered/Resolved]
  - Throat irritation [Recovered/Resolved]
  - Tongue discomfort [Recovered/Resolved]
  - Dyspnoea [Recovered/Resolved]
  - Gingival bleeding [Recovered/Resolved]

NARRATIVE: CASE EVENT DATE: 20220101
